FAERS Safety Report 22242455 (Version 1)
Quarter: 2023Q2

REPORT INFORMATION
  Report Type: Spontaneous
  Country: US (occurrence: None)
  Receive Date: 20230422
  Receipt Date: 20230422
  Transmission Date: 20230721
  Serious: No
  Sender: FDA-Public Use
  Company Number: 2023A090818

PATIENT
  Sex: Female

DRUGS (1)
  1. FARXIGA [Suspect]
     Active Substance: DAPAGLIFLOZIN PROPANEDIOL
     Route: 048

REACTIONS (6)
  - Confusional state [Unknown]
  - Brain fog [Unknown]
  - Vision blurred [Unknown]
  - Memory impairment [Unknown]
  - Therapy interrupted [Unknown]
  - Product dose omission issue [Unknown]
